FAERS Safety Report 11844517 (Version 2)
Quarter: 2016Q1

REPORT INFORMATION
  Report Type: Spontaneous
  Country: US (occurrence: US)
  Receive Date: 20151217
  Receipt Date: 20160104
  Transmission Date: 20160526
  Serious: Yes (Hospitalization)
  Sender: FDA-Public Use
  Company Number: US-JNJFOC-20151212654

PATIENT
  Sex: Male

DRUGS (1)
  1. IMBRUVICA [Suspect]
     Active Substance: IBRUTINIB
     Indication: CHRONIC LYMPHOCYTIC LEUKAEMIA
     Route: 048
     Dates: start: 201511

REACTIONS (6)
  - Dysgeusia [Unknown]
  - Abnormal faeces [Unknown]
  - Urine odour abnormal [Unknown]
  - Chest discomfort [Unknown]
  - Muscle tightness [Unknown]
  - Parosmia [Unknown]

NARRATIVE: CASE EVENT DATE: 201511
